FAERS Safety Report 9691318 (Version 1)
Quarter: 2013Q4

REPORT INFORMATION
  Report Type: Spontaneous
  Country: CA (occurrence: CA)
  Receive Date: 20131115
  Receipt Date: 20131115
  Transmission Date: 20140711
  Serious: Yes (Life-Threatening)
  Sender: FDA-Public Use
  Company Number: CA-MYLANLABS-2013S1025342

PATIENT
  Age: 58 Year
  Sex: Male

DRUGS (2)
  1. EPIPEN [Suspect]
     Indication: ARTHROPOD STING
  2. CRESTOR [Concomitant]

REACTIONS (1)
  - Device failure [Recovered/Resolved]
